FAERS Safety Report 15711012 (Version 4)
Quarter: 2019Q2

REPORT INFORMATION
  Report Type: Report from Study
  Country: JP (occurrence: JP)
  Receive Date: 20181211
  Receipt Date: 20190415
  Transmission Date: 20190711
  Serious: Yes (Death, Hospitalization)
  Sender: FDA-Public Use
  Company Number: JP-PFIZER INC-2018500657

PATIENT
  Age: 9 Year
  Sex: Female
  Weight: 15.7 kg

DRUGS (4)
  1. RAPALIMUS [Suspect]
     Active Substance: SIROLIMUS
     Dosage: 0.5 MG (1 IN 3 D)
     Route: 065
     Dates: start: 20181128, end: 201811
  2. RAPALIMUS [Suspect]
     Active Substance: SIROLIMUS
     Dosage: 0.5 MG,1 IN 1 D
     Route: 065
     Dates: start: 20180906, end: 20181108
  3. RAPALIMUS [Suspect]
     Active Substance: SIROLIMUS
     Dosage: 0.5 MG,1 IN 2 D
     Route: 065
     Dates: start: 20181109, end: 20181127
  4. RAPALIMUS [Suspect]
     Active Substance: SIROLIMUS
     Indication: LYMPHANGIOPATHY
     Dosage: 0.5 MG,1 IN 2 D
     Route: 065
     Dates: start: 20180621, end: 20180905

REACTIONS (4)
  - Oedema peripheral [Not Recovered/Not Resolved]
  - Disease progression [Recovered/Resolved]
  - Cardiac failure [Recovered/Resolved]
  - Respiratory failure [Fatal]

NARRATIVE: CASE EVENT DATE: 20181126
